FAERS Safety Report 11484353 (Version 1)
Quarter: 2015Q3

REPORT INFORMATION
  Report Type: Spontaneous
  Country: US (occurrence: US)
  Receive Date: 20150903
  Receipt Date: 20150903
  Transmission Date: 20151125
  Serious: Yes (Hospitalization, Other)
  Sender: FDA-Public Use
  Company Number: US-ELI_LILLY_AND_COMPANY-US201208008387

PATIENT
  Age: 79 Year
  Sex: Female

DRUGS (2)
  1. TRAMADOL. [Interacting]
     Active Substance: TRAMADOL
     Dosage: 50 MG, UNK
  2. CYMBALTA [Suspect]
     Active Substance: DULOXETINE HYDROCHLORIDE
     Indication: FIBROMYALGIA
     Dosage: 30 MG, QD
     Dates: start: 201202

REACTIONS (7)
  - Pain [Not Recovered/Not Resolved]
  - Nausea [Unknown]
  - Vertigo [Unknown]
  - Hyperhidrosis [Unknown]
  - Serotonin syndrome [Unknown]
  - Hypokinesia [Unknown]
  - Drug interaction [Unknown]
